FAERS Safety Report 7012209-1 (Version None)
Quarter: 2010Q3

REPORT INFORMATION
  Report Type: 
  Country: None (occurrence: None)
  Receive Date: 20100922
  Receipt Date: 20100922
  Transmission Date: 20110219
  Serious: Yes (Disabling)
  Sender: FDA-Public Use
  Company Number: None

PATIENT
  Sex: Female
  Weight: 52.6173 kg

DRUGS (1)
  1. ZICAM NASAL GEL - COLD REMEDY [Suspect]
     Indication: NASOPHARYNGITIS
     Dosage: ONE SPRAY EACH NOSTRIL NASAL
     Route: 045
     Dates: start: 20100704

REACTIONS (3)
  - AGEUSIA [None]
  - ANOSMIA [None]
  - NASAL DISCOMFORT [None]
